FAERS Safety Report 9395065 (Version 1)
Quarter: 2013Q3

REPORT INFORMATION
  Report Type: Spontaneous
  Country: US (occurrence: US)
  Receive Date: 20130711
  Receipt Date: 20130711
  Transmission Date: 20140515
  Serious: No
  Sender: FDA-Public Use
  Company Number: US-BAYER-2013-084033

PATIENT
  Age: 92 Year
  Sex: Female

DRUGS (2)
  1. ALEVE CAPLET [Suspect]
     Indication: BACK PAIN
     Dosage: 1 DF, BID
     Route: 048
     Dates: start: 201307
  2. BAYER GENUINE ASPIRIN ORIGINAL STRENGTH [Suspect]
     Route: 048

REACTIONS (3)
  - Drug ineffective [None]
  - Nausea [None]
  - Nausea [None]
